FAERS Safety Report 9369353 (Version 1)
Quarter: 2013Q2

REPORT INFORMATION
  Report Type: Spontaneous
  Country: US (occurrence: None)
  Receive Date: 20130625
  Receipt Date: 20130625
  Transmission Date: 20140414
  Serious: Yes (Other)
  Sender: FDA-Public Use
  Company Number: None

PATIENT
  Sex: 0

DRUGS (2)
  1. CYMBALTA 60MG [Suspect]
     Indication: DEPRESSION
     Dosage: 1X DAY
     Route: 048
     Dates: start: 20130528, end: 20130531
  2. CYMBALTA 60MG [Suspect]
     Indication: DIABETIC NEUROPATHY
     Dosage: 1X DAY
     Route: 048
     Dates: start: 20130528, end: 20130531

REACTIONS (9)
  - Panic attack [None]
  - Tremor [None]
  - Amnesia [None]
  - Stomatitis [None]
  - Urine flow decreased [None]
  - Tachyphrenia [None]
  - Muscle twitching [None]
  - Hallucination [None]
  - Mental status changes [None]
